FAERS Safety Report 9447544 (Version 4)
Quarter: 2013Q3

REPORT INFORMATION
  Report Type: Report from Study
  Country: US (occurrence: US)
  Receive Date: 20130808
  Receipt Date: 20130819
  Transmission Date: 20140515
  Serious: Yes (Hospitalization)
  Sender: FDA-Public Use
  Company Number: US-ROCHE-1257685

PATIENT
  Age: 66 Year
  Sex: Male
  Weight: 108.6 kg

DRUGS (12)
  1. TOCILIZUMAB [Suspect]
     Indication: RHEUMATOID ARTHRITIS
     Dosage: DATE OF LAST DOSE PRIOR TO SAE: 01/JUL/2013. DOSAGE FORM WAS INJECTION, SOLUTION, CONCENTRATE
     Route: 058
     Dates: start: 20120925, end: 20130708
  2. FOLIC ACID [Concomitant]
     Route: 065
     Dates: start: 201007
  3. METHOTREXATE [Concomitant]
     Route: 065
     Dates: start: 201007
  4. KETOCONAZOLE [Concomitant]
     Route: 065
     Dates: start: 2010
  5. COUMADIN [Concomitant]
     Route: 065
     Dates: start: 20100922
  6. TRAMADOL [Concomitant]
     Route: 065
     Dates: start: 20101005
  7. HCTZ [Concomitant]
     Route: 065
     Dates: start: 20120505
  8. HCTZ [Concomitant]
     Route: 065
     Dates: start: 20110411
  9. PREDNISONE [Concomitant]
     Route: 048
     Dates: start: 20120505
  10. LASIX [Concomitant]
     Route: 048
  11. OMEPRAZOLE [Concomitant]
  12. GEMFIBROZIL [Concomitant]
     Route: 065
     Dates: start: 20120410

REACTIONS (4)
  - Atrial fibrillation [Recovered/Resolved]
  - Cellulitis [Recovered/Resolved]
  - Lymphoedema [Recovered/Resolved]
  - Wound [Recovered/Resolved]
